FAERS Safety Report 18303459 (Version 1)
Quarter: 2020Q3

REPORT INFORMATION
  Report Type: Spontaneous
  Country: AR (occurrence: AR)
  Receive Date: 20200924
  Receipt Date: 20200924
  Transmission Date: 20201103
  Serious: Yes (Other)
  Sender: FDA-Public Use
  Company Number: AR-AMGEN-ARGSP2020154341

PATIENT
  Age: 58 Year
  Sex: Female

DRUGS (2)
  1. ENBREL [Suspect]
     Active Substance: ETANERCEPT
     Indication: RHEUMATOID ARTHRITIS
     Dosage: 50 MG, WEEKLY (1 DOSE PER WEEK)
     Route: 065
     Dates: start: 20161101
  2. ENBREL [Suspect]
     Active Substance: ETANERCEPT
     Dosage: UNK, (EVERY 10 DAYS)
     Route: 065

REACTIONS (7)
  - Osteoarthritis [Unknown]
  - Pain [Unknown]
  - Hypothyroidism [Unknown]
  - Spinal disorder [Unknown]
  - Gait disturbance [Unknown]
  - Hypertension [Unknown]
  - Intentional product misuse [Unknown]
